FAERS Safety Report 25095353 (Version 1)
Quarter: 2025Q1

REPORT INFORMATION
  Report Type: Spontaneous
  Country: US (occurrence: None)
  Receive Date: 20250319
  Receipt Date: 20250319
  Transmission Date: 20250409
  Serious: Yes (Death)
  Sender: FDA-CTU
  Company Number: None

PATIENT
  Age: 64 Year
  Sex: Female

DRUGS (11)
  1. REPATHA [Suspect]
     Active Substance: EVOLOCUMAB
     Indication: Coronary artery disease
     Dosage: 140 MG/ML EVERY 2 WEEKS SUBCUTANEOUS??THERAPY STRTED:   014-11-2022
     Route: 058
     Dates: start: 2022
  2. HYDROMORPHONE [Concomitant]
     Active Substance: HYDROMORPHONE
  3. VALSARTAN [Concomitant]
     Active Substance: VALSARTAN
  4. METOPROLOL TARTRATE [Concomitant]
     Active Substance: METOPROLOL TARTRATE
  5. ALPRAZOLAM [Concomitant]
     Active Substance: ALPRAZOLAM
  6. PANTOPRAZOLE SODIUM [Concomitant]
     Active Substance: PANTOPRAZOLE SODIUM
  7. ABILIFY [Concomitant]
     Active Substance: ARIPIPRAZOLE
  8. isosorbide di nitrate 30mg ER [Concomitant]
  9. COLLAGENASE SANTYL [Concomitant]
     Active Substance: COLLAGENASE CLOSTRIDIUM HISTOLYTICUM
  10. AMLODIPINE [Concomitant]
     Active Substance: AMLODIPINE BESYLATE
  11. FENOFIBRATE [Concomitant]
     Active Substance: FENOFIBRATE

REACTIONS (1)
  - Death [None]

NARRATIVE: CASE EVENT DATE: 20250315
